FAERS Safety Report 19681127 (Version 2)
Quarter: 2021Q3

REPORT INFORMATION
  Report Type: Spontaneous
  Country: US (occurrence: US)
  Receive Date: 20210810
  Receipt Date: 20210810
  Transmission Date: 20211014
  Serious: No
  Sender: FDA-Public Use
  Company Number: US-ALKERMES INC.-ALK-2021-004059

PATIENT

DRUGS (1)
  1. ARISTADA [Suspect]
     Active Substance: ARIPIPRAZOLE LAUROXIL
     Dosage: DOSE NOT ADMINISTERED

REACTIONS (1)
  - No adverse event [Recovered/Resolved]

NARRATIVE: CASE EVENT DATE: 20210604
